FAERS Safety Report 8496107-2 (Version None)
Quarter: 2012Q2

REPORT INFORMATION
  Report Type: 
  Country: None (occurrence: None)
  Receive Date: 20120629
  Receipt Date: 20120529
  Transmission Date: 20120825
  Serious: No
  Sender: FDA-Public Use
  Company Number: USA/USA/12/0024501

PATIENT
  Age: 82 Year
  Sex: Male

DRUGS (1)
  1. NATEGLINIDE [Suspect]
     Indication: TYPE 2 DIABETES MELLITUS
     Dosage: 120 MG, THRICE PER DAY BEFORE MEALS, ORAL
     Route: 048
     Dates: start: 20120419, end: 20120428

REACTIONS (2)
  - PRODUCT TASTE ABNORMAL [None]
  - PRODUCT QUALITY ISSUE [None]
